FAERS Safety Report 5504985-1 (Version None)
Quarter: 2007Q4

REPORT INFORMATION
  Report Type: 
  Country: None (occurrence: None)
  Receive Date: 20071031
  Receipt Date: 20071017
  Transmission Date: 20080405
  Serious: Yes (Hospitalization)
  Sender: FDA-Public Use
  Company Number: US019282

PATIENT
  Sex: Male
  Weight: 81.6475 kg

DRUGS (12)
  1. ACTIQ [Suspect]
     Indication: NEURALGIA
     Dosage: 1600 UG PRN, UP TO 9600UG QD BUCCAL
     Route: 002
     Dates: start: 20040101, end: 20061101
  2. DILAUDID [Concomitant]
  3. CLONIDINE [Concomitant]
  4. ATENOLOL [Concomitant]
  5. PRAVACHOL [Concomitant]
  6. FLOMAX [Concomitant]
  7. AVODART [Concomitant]
  8. DEPO-TESTOSTERONE [Concomitant]
  9. VALIUM [Concomitant]
  10. ZONEGRAN [Concomitant]
  11. CYMBALTA [Concomitant]
  12. CONSTIPATION MEDICATION [Concomitant]

REACTIONS (8)
  - DRUG WITHDRAWAL SYNDROME [None]
  - FALL [None]
  - HYPOAESTHESIA [None]
  - LETHARGY [None]
  - MENTAL DISORDER [None]
  - PARANOIA [None]
  - TOOTH FRACTURE [None]
  - TOOTHACHE [None]
